FAERS Safety Report 5803344-1 (Version None)
Quarter: 2008Q3

REPORT INFORMATION
  Report Type: 
  Country: None (occurrence: None)
  Receive Date: 20080708
  Receipt Date: 20080701
  Transmission Date: 20090109
  Serious: Yes (Other)
  Sender: FDA-Public Use
  Company Number: DE-BRISTOL-MYERS SQUIBB COMPANY-14249098

PATIENT
  Age: 5 Decade
  Sex: Female

DRUGS (1)
  1. ORENCIA [Suspect]
     Route: 042

REACTIONS (4)
  - ASTHENIA [None]
  - FEELING ABNORMAL [None]
  - HYPERSENSITIVITY [None]
  - SCLERITIS [None]
